FAERS Safety Report 8823018 (Version 2)
Quarter: 2012Q4

REPORT INFORMATION
  Report Type: 
  Country: US (occurrence: US)
  Receive Date: 20121003
  Receipt Date: 20121204
  Transmission Date: 20130627
  Serious: Yes (Other)
  Sender: FDA-Public Use
  Company Number: US-009507513-1209USA009567

PATIENT
  Age: 59 None
  Sex: Female
  Weight: 83.18 kg

DRUGS (5)
  1. ZOCOR [Suspect]
     Indication: BLOOD CHOLESTEROL INCREASED
     Dosage: 40 mg qd
     Route: 048
     Dates: start: 20110512, end: 201203
  2. ZOCOR [Suspect]
     Dosage: 40 mg, qd
     Route: 048
     Dates: start: 201203, end: 20120919
  3. ULTRAM [Concomitant]
  4. MELOXICAM [Concomitant]
     Dosage: UNK
  5. ISOCOR [Concomitant]

REACTIONS (4)
  - Myalgia [Recovering/Resolving]
  - Myalgia [Recovered/Resolved]
  - Musculoskeletal pain [Recovering/Resolving]
  - Arthralgia [Recovering/Resolving]
